FAERS Safety Report 17790931 (Version 1)
Quarter: 2020Q2

REPORT INFORMATION
  Report Type: Spontaneous
  Country: US (occurrence: US)
  Receive Date: 20200514
  Receipt Date: 20200514
  Transmission Date: 20200714
  Serious: No
  Sender: FDA-Public Use
  Company Number: None

PATIENT
  Age: 56 Year
  Sex: Female
  Weight: 96.75 kg

DRUGS (1)
  1. FERRIC GLUCONAATE 125MG/100ML @ 100ML/HR [Suspect]
     Active Substance: SODIUM FERRIC GLUCONATE COMPLEX
     Indication: ANAEMIA
     Dosage: ?          OTHER FREQUENCY:Q WEEK X 4 WEEKS;?
     Route: 041
     Dates: start: 20200514

REACTIONS (2)
  - Pruritus [None]
  - Chest discomfort [None]

NARRATIVE: CASE EVENT DATE: 20200514
